FAERS Safety Report 17453540 (Version 1)
Quarter: 2020Q1

REPORT INFORMATION
  Report Type: Spontaneous
  Country: US (occurrence: US)
  Receive Date: 20200224
  Receipt Date: 20200224
  Transmission Date: 20200409
  Serious: No
  Sender: FDA-Public Use
  Company Number: US-BAYER-2020-030787

PATIENT
  Age: 45 Year
  Sex: Female
  Weight: 70.75 kg

DRUGS (3)
  1. MIRENA [Suspect]
     Active Substance: LEVONORGESTREL
     Indication: CONTRACEPTION
     Dosage: 20 ?G PER DAY, CONTINUSOUSLY
     Route: 015
     Dates: end: 20191107
  2. POVIDONE-IODINE. [Concomitant]
     Active Substance: POVIDONE-IODINE
     Dosage: UNK
     Dates: start: 20191107
  3. MIRENA [Suspect]
     Active Substance: LEVONORGESTREL
     Indication: CONTRACEPTION
     Dosage: 20 ?G PER DAY, CONTINUSOUSLY
     Route: 015
     Dates: start: 20191107, end: 20191107

REACTIONS (3)
  - Complication of device insertion [None]
  - Uterine cervix stenosis [None]
  - Procedural pain [None]

NARRATIVE: CASE EVENT DATE: 20191107
